FAERS Safety Report 4517021-0 (Version None)
Quarter: 2005Q1

REPORT INFORMATION
  Report Type: 
  Country: None (occurrence: None)
  Receive Date: 20041029
  Receipt Date: 20040929
  Transmission Date: 20050727
  Serious: No
  Sender: FDA-Public Use
  Company Number: 2004-120748-NL

PATIENT
  Age: 42 Year
  Sex: Female
  Weight: 55.3 kg

DRUGS (4)
  1. NUVARING [Suspect]
     Indication: CONTRACEPTION
     Dosage: DF DAILY VAGINAL
     Route: 067
     Dates: start: 20030901, end: 20040801
  2. FLONASE [Concomitant]
  3. ZYRTEC [Concomitant]
  4. PRILOSEC [Concomitant]

REACTIONS (3)
  - VAGINAL CONTRACEPTIVE DEVICE EXPELLED [None]
  - VULVOVAGINAL DISCOMFORT [None]
  - VULVOVAGINAL DRYNESS [None]
